FAERS Safety Report 8362334 (Version 8)
Quarter: 2013Q3

REPORT INFORMATION
  Report Type: Spontaneous
  Country: US (occurrence: US)
  Receive Date: 20120130
  Receipt Date: 20130801
  Transmission Date: 20140515
  Serious: Yes (Hospitalization, Other)
  Sender: FDA-Public Use
  Company Number: US-ROCHE-1034481

PATIENT
  Age: 14 Year
  Sex: Male

DRUGS (1)
  1. ACCUTANE [Suspect]
     Indication: ACNE
     Route: 065
     Dates: start: 19931110

REACTIONS (14)
  - Inflammatory bowel disease [Unknown]
  - Crohn^s disease [Unknown]
  - Small intestinal obstruction [Unknown]
  - Anal fistula [Unknown]
  - Anal fissure [Unknown]
  - Perirectal abscess [Unknown]
  - Anxiety [Unknown]
  - Depression [Unknown]
  - Suicidal ideation [Unknown]
  - Attention deficit/hyperactivity disorder [Unknown]
  - Post-traumatic stress disorder [Unknown]
  - Lip dry [Unknown]
  - Blood cholesterol increased [Unknown]
  - Blood triglycerides increased [Unknown]
